FAERS Safety Report 4823352-7 (Version None)
Quarter: 2005Q4

REPORT INFORMATION
  Report Type: 
  Country: None (occurrence: None)
  Receive Date: 20051107
  Receipt Date: 20051025
  Transmission Date: 20060501
  Serious: Yes (Other)
  Sender: FDA-Public Use
  Company Number: HQWYE259526OCT05

PATIENT
  Sex: Female

DRUGS (1)
  1. PREMARIN [Suspect]
     Dosage: ORAL
     Route: 048
     Dates: start: 19930101, end: 20000101

REACTIONS (3)
  - BREAST CANCER METASTATIC [None]
  - METASTASES TO LYMPH NODES [None]
  - OVERDOSE [None]
